FAERS Safety Report 14347736 (Version 3)
Quarter: 2018Q4

REPORT INFORMATION
  Report Type: Spontaneous
  Country: US (occurrence: US)
  Receive Date: 20180103
  Receipt Date: 20181031
  Transmission Date: 20190204
  Serious: No
  Sender: FDA-Public Use
  Company Number: US-PFIZER INC-2017554933

PATIENT
  Age: 67 Year
  Sex: Female

DRUGS (8)
  1. NITROFURANTOIN. [Suspect]
     Active Substance: NITROFURANTOIN
     Dosage: UNK (MACROCRYSTALLINE FORM)
  2. CIPROFLOXACIN. [Suspect]
     Active Substance: CIPROFLOXACIN
     Dosage: UNK
  3. BIAXIN [Suspect]
     Active Substance: CLARITHROMYCIN
     Dosage: UNK
  4. GABAPENTIN. [Suspect]
     Active Substance: GABAPENTIN
     Dosage: UNK
  5. BACLOFEN. [Suspect]
     Active Substance: BACLOFEN
     Dosage: UNK
  6. METHOCARBAMOL. [Suspect]
     Active Substance: METHOCARBAMOL
     Dosage: UNK
  7. CLINDAMYCIN HCL [Suspect]
     Active Substance: CLINDAMYCIN HYDROCHLORIDE
     Dosage: UNK
  8. LYRICA [Concomitant]
     Active Substance: PREGABALIN
     Dosage: UNK

REACTIONS (1)
  - Drug hypersensitivity [Unknown]
